FAERS Safety Report 11762229 (Version 1)
Quarter: 2015Q4

REPORT INFORMATION
  Report Type: Spontaneous
  Country: US (occurrence: US)
  Receive Date: 20151120
  Receipt Date: 20151120
  Transmission Date: 20160304
  Serious: Yes (Hospitalization)
  Sender: FDA-Public Use
  Company Number: US-ELI_LILLY_AND_COMPANY-US201212001598

PATIENT
  Sex: Female

DRUGS (11)
  1. OCUVITE [Concomitant]
     Active Substance: VITAMINS
     Dosage: UNK, QD
  2. OXYBUTIN [Suspect]
     Active Substance: OXYBUTYNIN
     Dosage: 5 MG, UNK
  3. CALCIUM CARBONATE. [Concomitant]
     Active Substance: CALCIUM CARBONATE
     Dosage: 600 MG, QD
  4. FORTEO [Suspect]
     Active Substance: TERIPARATIDE
     Dosage: 20 UG, QD
     Route: 058
     Dates: start: 201206, end: 20121026
  5. NORVASC [Concomitant]
     Active Substance: AMLODIPINE BESYLATE
     Dosage: 5 MG, QD
  6. ASA [Concomitant]
     Active Substance: ASPIRIN
     Dosage: 325 MG, QD
  7. VITAMIN D [Concomitant]
     Active Substance: CHOLECALCIFEROL
  8. PERSANTINE [Concomitant]
     Active Substance: DIPYRIDAMOLE
     Dosage: 25 MG, BID
  9. MAGNESIUM [Concomitant]
     Active Substance: MAGNESIUM
     Dosage: 250 MG, BID
  10. TYLENOL [Concomitant]
     Active Substance: ACETAMINOPHEN
     Dosage: 650 MG, QD
  11. ATENOLOL. [Concomitant]
     Active Substance: ATENOLOL
     Dosage: 50 MG, QD

REACTIONS (1)
  - Hypercalcaemia [Recovered/Resolved]
